FAERS Safety Report 18443277 (Version 1)
Quarter: 2020Q4

REPORT INFORMATION
  Report Type: Spontaneous
  Country: US (occurrence: US)
  Receive Date: 20201030
  Receipt Date: 20201030
  Transmission Date: 20210114
  Serious: Yes (Hospitalization, Other)
  Sender: FDA-Public Use
  Company Number: US-AMGEN-USASP2020169831

PATIENT
  Age: 51 Year
  Sex: Male

DRUGS (1)
  1. AVSOLA [Suspect]
     Active Substance: INFLIXIMAB-AXXQ
     Indication: SARCOIDOSIS
     Dosage: UNK
     Route: 065

REACTIONS (4)
  - Coronavirus infection [Unknown]
  - Off label use [Unknown]
  - Histoplasmosis disseminated [Recovered/Resolved]
  - Sarcoidosis [Unknown]
